FAERS Safety Report 8334640-4 (Version None)
Quarter: 2012Q2

REPORT INFORMATION
  Report Type: 
  Country: None (occurrence: None)
  Receive Date: 20120503
  Receipt Date: 20120425
  Transmission Date: 20120825
  Serious: Yes (Hospitalization, Disabling)
  Sender: FDA-Public Use
  Company Number: US-MERCK-1203USA03337

PATIENT
  Age: 58 Year
  Sex: Female

DRUGS (2)
  1. FOSAMAX [Suspect]
     Route: 048
  2. FOSAMAX [Suspect]
     Indication: OSTEOPENIA
     Route: 048
     Dates: start: 19990101, end: 20100201

REACTIONS (7)
  - GASTROINTESTINAL DISORDER [None]
  - FEMUR FRACTURE [None]
  - BLOOD CHOLESTEROL INCREASED [None]
  - BONE DENSITY DECREASED [None]
  - OSTEOPOROSIS [None]
  - STRESS FRACTURE [None]
  - TOOTH DISORDER [None]
